FAERS Safety Report 20734221 (Version 3)
Quarter: 2022Q2

REPORT INFORMATION
  Report Type: Report from Study
  Country: US (occurrence: US)
  Receive Date: 20220421
  Receipt Date: 20220505
  Transmission Date: 20220720
  Serious: Yes (Hospitalization, Other)
  Sender: FDA-Public Use
  Company Number: US-JNJFOC-20220363350

PATIENT
  Age: 50 Year
  Sex: Male
  Weight: 145.5 kg

DRUGS (6)
  1. EPOPROSTENOL SODIUM [Suspect]
     Active Substance: EPOPROSTENOL SODIUM
     Indication: Pulmonary hypertension
     Route: 042
  2. EPOPROSTENOL SODIUM [Suspect]
     Active Substance: EPOPROSTENOL SODIUM
     Indication: Pulmonary arterial hypertension
     Route: 042
  3. LETAIRIS [Concomitant]
     Active Substance: AMBRISENTAN
  4. WARFARIN [Concomitant]
     Active Substance: WARFARIN
  5. ADCIRCA [Concomitant]
     Active Substance: TADALAFIL
  6. DILTIAZEM [Concomitant]
     Active Substance: DILTIAZEM

REACTIONS (5)
  - Chronic kidney disease [Unknown]
  - Ascites [Unknown]
  - Device occlusion [Unknown]
  - Drug delivery system malfunction [Unknown]
  - Product administration interrupted [Unknown]

NARRATIVE: CASE EVENT DATE: 20220328
